FAERS Safety Report 10541545 (Version 2)
Quarter: 2014Q4

REPORT INFORMATION
  Report Type: Report from Study
  Country: FR (occurrence: FR)
  Receive Date: 20141024
  Receipt Date: 20141024
  Transmission Date: 20150529
  Serious: Yes (Death, Hospitalization, Other)
  Sender: FDA-Public Use
  Company Number: FR-GLAXOSMITHKLINE-B1025527A

PATIENT
  Age: 65 Year
  Sex: Female
  Weight: 88 kg

DRUGS (10)
  1. ZOPICLONE [Concomitant]
     Active Substance: ZOPICLONE
  2. METOCLOPRAMIDE. [Concomitant]
     Active Substance: METOCLOPRAMIDE
  3. LEVOTHYROXIN [Concomitant]
     Active Substance: LEVOTHYROXINE
  4. PARACETAMOL [Concomitant]
     Active Substance: ACETAMINOPHEN
  5. LERCANIDIPINE [Concomitant]
     Active Substance: LERCANIDIPINE
  6. PROPANOL [Concomitant]
     Active Substance: PROPRANOLOL HYDROCHLORIDE
  7. TRAMADOL [Concomitant]
     Active Substance: TRAMADOL
  8. FUROSEMIDE. [Concomitant]
     Active Substance: FUROSEMIDE
  9. LYSINE ACETYLSALICYLATE [Concomitant]
     Active Substance: ASPIRIN LYSINE
  10. PAZOPANIB [Suspect]
     Active Substance: PAZOPANIB
     Indication: THYROID CANCER
     Route: 048
     Dates: start: 20140505, end: 20140731

REACTIONS (1)
  - Pulmonary embolism [Fatal]

NARRATIVE: CASE EVENT DATE: 20140805
